FAERS Safety Report 6305835-6 (Version None)
Quarter: 2009Q3

REPORT INFORMATION
  Report Type: 
  Country: None (occurrence: None)
  Receive Date: 20090803
  Receipt Date: 20090420
  Transmission Date: 20100115
  Serious: Yes (Hospitalization, Other)
  Sender: FDA-Public Use
  Company Number: 190656USA

PATIENT
  Age: 2 Year
  Sex: Male
  Weight: 13.4 kg

DRUGS (8)
  1. IFOSFAMIDE [Suspect]
     Indication: RHABDOID TUMOUR OF THE KIDNEY
     Dosage: 3GM/60ML EVERY TWENTY HOURS (1025 MG) , PARENTERAL
     Route: 051
     Dates: start: 20090216, end: 20090220
  2. IFOSFAMIDE [Suspect]
  3. MESNA [Concomitant]
  4. CARBOPLATIN [Concomitant]
  5. ETOPOSIDE [Concomitant]
  6. DEXAMETHASONE [Concomitant]
  7. BACTRIM [Concomitant]
  8. VANCOMYCIN [Concomitant]

REACTIONS (5)
  - COORDINATION ABNORMAL [None]
  - DISTRACTIBILITY [None]
  - GAIT DISTURBANCE [None]
  - IRRITABILITY [None]
  - NEUROTOXICITY [None]
